FAERS Safety Report 23307755 (Version 1)
Quarter: 2023Q4

REPORT INFORMATION
  Report Type: Spontaneous
  Country: US (occurrence: None)
  Receive Date: 20231215
  Receipt Date: 20231215
  Transmission Date: 20240110
  Serious: No
  Sender: FDA-Public Use
  Company Number: None

PATIENT
  Age: 19 Month
  Sex: Female
  Weight: 12.6 kg

DRUGS (2)
  1. INFANTS PAIN AND FEVER [Suspect]
     Active Substance: ACETAMINOPHEN
     Indication: Teething
     Dosage: FREQUENCY : EVERY 4 HOURS;?
     Route: 048
     Dates: start: 20230517, end: 20231213
  2. INFANTS PAIN AND FEVER [Suspect]
     Active Substance: ACETAMINOPHEN
     Indication: Malaise

REACTIONS (4)
  - Fatigue [None]
  - Irritability [None]
  - Feeling abnormal [None]
  - Vomiting [None]

NARRATIVE: CASE EVENT DATE: 20231026
